FAERS Safety Report 6620741-5 (Version None)
Quarter: 2010Q1

REPORT INFORMATION
  Report Type: 
  Country: None (occurrence: None)
  Receive Date: 20100309
  Receipt Date: 20100224
  Transmission Date: 20100710
  Serious: Yes (Death)
  Sender: FDA-Public Use
  Company Number: GB-ROCHE-688682

PATIENT
  Age: 3 Year
  Sex: Male

DRUGS (4)
  1. CELLCEPT [Suspect]
     Route: 065
  2. CYCLOSPORINE [Suspect]
     Route: 065
  3. CYCLOPHOSPHAMIDE [Concomitant]
     Dosage: DOSE: 5 MG/KG D-5-D-2.
  4. FLUDARABINE [Concomitant]
     Dosage: DOSE: 30 MG/M2 D-9 - D-5.

REACTIONS (3)
  - ACUTE GRAFT VERSUS HOST DISEASE IN LIVER [None]
  - ACUTE GRAFT VERSUS HOST DISEASE IN SKIN [None]
  - CYTOMEGALOVIRUS INFECTION [None]
